FAERS Safety Report 4273552-2 (Version None)
Quarter: 2004Q1

REPORT INFORMATION
  Report Type: 
  Country: None (occurrence: None)
  Receive Date: 20040114
  Receipt Date: 20020521
  Transmission Date: 20041129
  Serious: Yes (Hospitalization, Other)
  Sender: FDA-Public Use
  Company Number: KII-2002-0006742

PATIENT
  Sex: Male

DRUGS (2)
  1. OXYCONTIN [Suspect]
     Indication: PAIN
     Dosage: 20 MG, Q12H
  2. PERCOCET [Suspect]
     Indication: PAIN
     Dosage: Q4H

REACTIONS (2)
  - MEDICATION ERROR [None]
  - RESPIRATORY DEPRESSION [None]
